FAERS Safety Report 6514952-7 (Version None)
Quarter: 2009Q4

REPORT INFORMATION
  Report Type: 
  Country: None (occurrence: None)
  Receive Date: 20091223
  Receipt Date: 20091218
  Transmission Date: 20100525
  Serious: Yes (Other)
  Sender: FDA-Public Use
  Company Number: US-RB-027162-09

PATIENT
  Sex: Female

DRUGS (1)
  1. DELSYM ADULT ORANGE 3 OZ [Suspect]
     Dosage: TOOK 2 TEASPOONS OF PRODUCT
     Route: 048
     Dates: start: 20091217

REACTIONS (4)
  - DRY MOUTH [None]
  - HYPERTENSION [None]
  - TACHYCARDIA [None]
  - THROAT TIGHTNESS [None]
